FAERS Safety Report 7328576-5 (Version None)
Quarter: 2011Q1

REPORT INFORMATION
  Report Type: 
  Country: None (occurrence: None)
  Receive Date: 20110303
  Receipt Date: 20101102
  Transmission Date: 20110831
  Serious: Yes (Hospitalization)
  Sender: FDA-Public Use
  Company Number: US-SANOFI-AVENTIS-2010SA067444

PATIENT
  Age: 71 Year
  Sex: Male
  Weight: 194 kg

DRUGS (11)
  1. PLACEBO [Suspect]
     Indication: PROSTATE CANCER
     Route: 065
  2. TROMBYL [Concomitant]
  3. PROCRIN DEPOT [Concomitant]
     Dates: start: 20070101
  4. ALFUZOSIN [Concomitant]
     Dates: end: 20090226
  5. OXYCODONE [Concomitant]
     Dates: start: 20090101
  6. SIMVASTATIN [Concomitant]
  7. PARACETAMOL [Concomitant]
     Dates: start: 20080101
  8. PREDNISOLONE [Suspect]
     Route: 048
  9. COCILLANA-ETYFIN [Concomitant]
     Dates: start: 20090302
  10. GLYBURIDE [Suspect]
     Indication: DIABETES MELLITUS
     Route: 048
     Dates: start: 19940101, end: 20090309
  11. METOCLOPRAMIDE [Concomitant]
     Dates: start: 20090301

REACTIONS (1)
  - HYPOGLYCAEMIA [None]
